FAERS Safety Report 9704122 (Version 1)
Quarter: 2013Q4

REPORT INFORMATION
  Report Type: Spontaneous
  Country: US (occurrence: US)
  Receive Date: 20131122
  Receipt Date: 20131122
  Transmission Date: 20140711
  Serious: No
  Sender: FDA-Public Use
  Company Number: US-GLAXOSMITHKLINE-A1012228A

PATIENT
  Sex: Female

DRUGS (3)
  1. WELLBUTRIN SR [Suspect]
     Indication: PRODUCT USED FOR UNKNOWN INDICATION
     Dosage: 150MG UNKNOWN
     Route: 065
     Dates: start: 20090811
  2. EFFEXOR [Suspect]
  3. CONCERTA [Suspect]

REACTIONS (5)
  - Loss of libido [Unknown]
  - Dry mouth [Unknown]
  - Malaise [Unknown]
  - Depressed mood [Unknown]
  - Feeling abnormal [Unknown]
